FAERS Safety Report 4491191-5 (Version None)
Quarter: 2004Q3

REPORT INFORMATION
  Report Type: 
  Country: None (occurrence: None)
  Receive Date: 20040927
  Receipt Date: 20040803
  Transmission Date: 20050211
  Serious: No
  Sender: FDA-Public Use
  Company Number: USA040874467

PATIENT
  Age: 16 Year
  Sex: Male
  Weight: 30 kg

DRUGS (2)
  1. STRATTERA [Suspect]
     Indication: ATTENTION DEFICIT/HYPERACTIVITY DISORDER
     Dosage: 40 MG DAY
     Dates: start: 20030801
  2. ADDERALL 5 [Concomitant]

REACTIONS (2)
  - DRUG EFFECT DECREASED [None]
  - PLATELET COUNT DECREASED [None]
